FAERS Safety Report 24829962 (Version 1)
Quarter: 2025Q1

REPORT INFORMATION
  Report Type: Report from Study
  Country: US (occurrence: US)
  Receive Date: 20250110
  Receipt Date: 20250110
  Transmission Date: 20250409
  Serious: Yes (Hospitalization)
  Sender: ABBVIE
  Company Number: US-ABBVIE-6076308

PATIENT
  Age: 54 Year
  Sex: Female

DRUGS (1)
  1. VENCLEXTA [Suspect]
     Active Substance: VENETOCLAX
     Indication: Chronic lymphocytic leukaemia recurrent
     Route: 048
     Dates: start: 20240624

REACTIONS (6)
  - Migraine [Recovered/Resolved]
  - Hypoaesthesia [Unknown]
  - Sensory disturbance [Unknown]
  - Mobility decreased [Unknown]
  - Muscular weakness [Unknown]
  - Dysstasia [Not Recovered/Not Resolved]
